FAERS Safety Report 7615608-X (Version None)
Quarter: 2011Q3

REPORT INFORMATION
  Report Type: 
  Country: None (occurrence: None)
  Receive Date: 20110711
  Receipt Date: 20110613
  Transmission Date: 20111222
  Serious: Yes (Death, Hospitalization)
  Sender: FDA-Public Use
  Company Number: 15021363

PATIENT
  Age: 77 Year
  Sex: Female

DRUGS (7)
  1. PLACEBO [Suspect]
     Indication: THROMBOSIS PROPHYLAXIS
     Dosage: ORAL
     Route: 048
     Dates: start: 20091116, end: 20100311
  2. FUROSEMIDE [Concomitant]
  3. METFORMIN HCL [Concomitant]
  4. AMIODARONA (AMIODARONE HCL) [Concomitant]
  5. GLIMEPIRIDE [Concomitant]
  6. WARFARIN SODIUM [Suspect]
     Indication: THROMBOSIS PROPHYLAXIS
     Dosage: 2 MILLIGRAM 1 DAY ORAL
     Route: 048
     Dates: start: 20091116, end: 20100311
  7. LOSARTAN (LOSARTAN POTASSIUM) [Concomitant]

REACTIONS (6)
  - ASPIRATION BRONCHIAL [None]
  - CARDIAC FAILURE [None]
  - CARDIOGENIC SHOCK [None]
  - VENTRICULAR ARRHYTHMIA [None]
  - DIABETES MELLITUS [None]
  - CARDIO-RESPIRATORY ARREST [None]
